FAERS Safety Report 4807244-5 (Version None)
Quarter: 2005Q4

REPORT INFORMATION
  Report Type: 
  Country: None (occurrence: None)
  Receive Date: 20051020
  Receipt Date: 20051020
  Transmission Date: 20060501
  Serious: Yes (Hospitalization, Disabling)
  Sender: FDA-Public Use
  Company Number: None

PATIENT
  Sex: Female
  Weight: 65.7716 kg

DRUGS (3)
  1. CELESTONE SOLUSPAN [Suspect]
     Indication: CORNEAL GRAFT REJECTION
     Dosage: 3MG  3 X PER WEEK IM
     Route: 030
     Dates: start: 19960208, end: 19961208
  2. PREDNISONE [Suspect]
     Indication: ASTHMA
     Dosage: 60MG TAPERED DOSE PO   ON AND OFF FOR 10 YEARS
  3. PREDNISONE [Suspect]
     Indication: SINUSITIS
     Dosage: 60MG TAPERED DOSE PO   ON AND OFF FOR 10 YEARS

REACTIONS (1)
  - OSTEONECROSIS [None]
